FAERS Safety Report 7456125-X (Version None)
Quarter: 2011Q2

REPORT INFORMATION
  Report Type: 
  Country: None (occurrence: None)
  Receive Date: 20110503
  Receipt Date: 20110420
  Transmission Date: 20111010
  Serious: Yes (Hospitalization)
  Sender: FDA-Public Use
  Company Number: PHFR2011GB02696

PATIENT

DRUGS (2)
  1. OXYCODONE [Concomitant]
  2. NEORAL [Suspect]
     Indication: RENAL TRANSPLANT
     Dosage: 50 MG, BID

REACTIONS (1)
  - LOWER LIMB FRACTURE [None]
